FAERS Safety Report 5333351-7 (Version None)
Quarter: 2007Q2

REPORT INFORMATION
  Report Type: 
  Country: None (occurrence: None)
  Receive Date: 20070524
  Receipt Date: 20070515
  Transmission Date: 20071010
  Serious: Yes (Life-Threatening, Hospitalization)
  Sender: FDA-Public Use
  Company Number: FR-AVENTIS-200711267FR

PATIENT
  Age: 58 Year
  Sex: Male

DRUGS (10)
  1. TAXOTERE [Suspect]
     Route: 042
     Dates: start: 20070308, end: 20070308
  2. TAXOTERE [Suspect]
     Route: 042
     Dates: start: 20070301, end: 20070301
  3. TAXOTERE [Suspect]
     Route: 042
     Dates: start: 20070403, end: 20070403
  4. AMLOR [Concomitant]
     Indication: HYPERTENSION
     Route: 048
  5. OXYCONTIN [Concomitant]
     Indication: PAIN
     Route: 048
  6. OXYNORM [Concomitant]
     Indication: PAIN
     Route: 048
  7. INIPOMP                            /01263201/ [Concomitant]
     Route: 048
  8. RIVOTRIL [Concomitant]
     Indication: EPILEPSY
     Route: 048
  9. OSTRAM                             /00183801/ [Concomitant]
     Route: 048
  10. DAFALGAN                           /00020001/ [Concomitant]
     Indication: PAIN
     Route: 048

REACTIONS (8)
  - ARTHRALGIA [None]
  - ASPARTATE AMINOTRANSFERASE INCREASED [None]
  - BLOOD LACTATE DEHYDROGENASE INCREASED [None]
  - DISSEMINATED INTRAVASCULAR COAGULATION [None]
  - HISTIOCYTOSIS HAEMATOPHAGIC [None]
  - MYALGIA [None]
  - PROTHROMBIN TIME SHORTENED [None]
  - PYREXIA [None]
